FAERS Safety Report 7576346-5 (Version None)
Quarter: 2011Q2

REPORT INFORMATION
  Report Type: 
  Country: None (occurrence: None)
  Receive Date: 20110628
  Receipt Date: 20091130
  Transmission Date: 20111010
  Serious: Yes (Death, Hospitalization, Other)
  Sender: FDA-Public Use
  Company Number: US-BAYER-200941163NA

PATIENT
  Sex: Male
  Weight: 72 kg

DRUGS (14)
  1. TRASYLOL [Suspect]
     Indication: CORONARY ARTERY BYPASS
     Dosage: UNK
     Route: 042
     Dates: start: 19960501
  2. DOPAMINE HCL [Concomitant]
     Dosage: 2MVCG/KG/MINUTE
     Route: 042
     Dates: start: 19960528
  3. LEVOPHED [Concomitant]
     Dosage: .0185 MCG/KG/MINUTE
     Route: 042
     Dates: start: 19960528
  4. LOPRESSOR [Concomitant]
     Dosage: 25 MG EVERY 12 HOURS
     Route: 048
  5. ALLOPURINOL [Concomitant]
     Dosage: 300 MG, ONCE
     Route: 048
  6. ZESTRIL [Concomitant]
     Dosage: 10 MG, ONCE
     Route: 048
  7. TRIDIL [Concomitant]
     Dosage: 15 MG/MINUTE
     Route: 042
     Dates: start: 19960518
  8. PAVULON [Concomitant]
     Dosage: UNK
     Route: 042
     Dates: start: 20060528, end: 20060528
  9. COUMADIN [Concomitant]
     Dosage: UNK
     Dates: start: 19960101
  10. LASIX [Concomitant]
     Dosage: 10 MG, UNK
     Route: 042
     Dates: start: 19960528, end: 19960528
  11. KEFZOL [Concomitant]
     Dosage: 1 G, UNK
     Route: 042
     Dates: start: 19960528, end: 19960528
  12. FENTANYL [Concomitant]
     Dosage: 1000 MG, UNK
     Route: 042
     Dates: start: 19960528, end: 19960528
  13. HEPARIN [Concomitant]
     Dosage: 13.5 UNITS/HOUR
     Route: 017
     Dates: start: 19960518
  14. AMICAR [Concomitant]
     Dosage: 10 ML; 5 (ILLEGIBLE)
     Route: 042
     Dates: start: 19960528, end: 19960528

REACTIONS (13)
  - STRESS [None]
  - DEATH [None]
  - ANXIETY [None]
  - FEAR [None]
  - ANHEDONIA [None]
  - RENAL IMPAIRMENT [None]
  - UNEVALUABLE EVENT [None]
  - RENAL FAILURE [None]
  - PAIN [None]
  - RENAL INJURY [None]
  - EMOTIONAL DISTRESS [None]
  - INJURY [None]
  - CEREBROVASCULAR ACCIDENT [None]
